FAERS Safety Report 7654966 (Version 6)
Quarter: 2014Q4

REPORT INFORMATION
  Report Type: Report from Study
  Country: DE (occurrence: DE)
  Receive Date: 20101103
  Receipt Date: 20141113
  Transmission Date: 20150529
  Serious: Yes (Hospitalization, Disabling, Other)
  Sender: FDA-Public Use
  Company Number: DE-ROCHE-736101

PATIENT
  Age: 70 Year
  Sex: Female
  Weight: 72 kg

DRUGS (8)
  1. ZOLEDRONATE [Suspect]
     Active Substance: ZOLEDRONIC ACID
     Route: 042
  2. PACLITAXEL. [Concomitant]
     Active Substance: PACLITAXEL
     Indication: BREAST CANCER
     Dosage: DAY 1, 8, 15 OF A CYCLE
     Route: 042
     Dates: start: 20100211, end: 20100906
  3. BEVACIZUMAB [Suspect]
     Active Substance: BEVACIZUMAB
     Dosage: DAY 1 AND 15 OF A CYCLE OF 4 WEEKS
     Route: 042
  4. ZOLEDRONATE [Suspect]
     Active Substance: ZOLEDRONIC ACID
     Indication: BREAST CANCER METASTATIC
     Route: 042
  5. RAMIPRIL. [Concomitant]
     Active Substance: RAMIPRIL
     Indication: HYPERTENSION
     Route: 048
     Dates: start: 20100426, end: 20110210
  6. BEVACIZUMAB [Suspect]
     Active Substance: BEVACIZUMAB
     Dosage: 700 MG
     Route: 042
     Dates: start: 20100630, end: 20100630
  7. ZOLEDRONATE [Suspect]
     Active Substance: ZOLEDRONIC ACID
     Route: 042
  8. BEVACIZUMAB [Suspect]
     Active Substance: BEVACIZUMAB
     Indication: BREAST CANCER METASTATIC
     Dosage: DAY 1 AND 15 OF A CYCLE OF 4 WEEKS, 5 CYCLES, 10 APPLICATIONS RESPECTIVELY, 700 MG
     Route: 042
     Dates: start: 20100211, end: 20100614

REACTIONS (2)
  - Tooth loss [Not Recovered/Not Resolved]
  - Osteonecrosis of jaw [Not Recovered/Not Resolved]

NARRATIVE: CASE EVENT DATE: 20100630
